FAERS Safety Report 8132696-5 (Version None)
Quarter: 2012Q1

REPORT INFORMATION
  Report Type: 
  Country: None (occurrence: None)
  Receive Date: 20120208
  Receipt Date: 20111223
  Transmission Date: 20120608
  Serious: Yes (Hospitalization)
  Sender: FDA-Public Use
  Company Number: B0744753A

PATIENT
  Sex: Female
  Weight: 94.8018 kg

DRUGS (6)
  1. CLONAZEPAM [Concomitant]
  2. TRANYLCYPROMINE SULFATE [Suspect]
     Indication: DEPRESSION
     Dosage: 10 MG / TWICE PER DAY / ORAL ; 10 MG 4 TIMES / ORAL
     Route: 048
     Dates: start: 20110530
  3. TRANYLCYPROMINE SULFATE [Suspect]
     Indication: DEPRESSION
     Dosage: 10 MG / TWICE PER DAY / ORAL ; 10 MG 4 TIMES / ORAL
     Route: 048
     Dates: start: 20110801
  4. TRANYLCYPROMINE SULFATE [Suspect]
     Indication: DEPRESSION
     Dosage: 10 MG TWICE PER DAY / ORAL
     Route: 048
     Dates: start: 20110702
  5. TRANYLCYPROMINE SULFATE [Suspect]
     Indication: DEPRESSION
     Dosage: 10 MG TWICE PER DAY / ORAL
     Route: 048
     Dates: start: 20100101
  6. ACETAMINOPHEN [Concomitant]

REACTIONS (13)
  - WEIGHT INCREASED [None]
  - ANXIETY [None]
  - DRUG INEFFECTIVE [None]
  - PANIC DISORDER [None]
  - NAUSEA [None]
  - PRODUCT QUALITY ISSUE [None]
  - DEPRESSED MOOD [None]
  - HUNGER [None]
  - CRYING [None]
  - NIGHTMARE [None]
  - SOMNOLENCE [None]
  - DEPRESSION [None]
  - CONDITION AGGRAVATED [None]
